FAERS Safety Report 7447380-0 (Version None)
Quarter: 2011Q2

REPORT INFORMATION
  Report Type: 
  Country: None (occurrence: None)
  Receive Date: 20110421
  Receipt Date: 20110405
  Transmission Date: 20111010
  Serious: No
  Sender: FDA-Public Use
  Company Number: B0713145A

PATIENT
  Age: 3 Month
  Sex: Female

DRUGS (1)
  1. INNOPRAN XL [Suspect]
     Indication: FALLOT'S TETRALOGY

REACTIONS (2)
  - RESPIRATORY DISORDER [None]
  - NASAL OBSTRUCTION [None]
